FAERS Safety Report 4316309-6 (Version None)
Quarter: 2004Q1

REPORT INFORMATION
  Report Type: 
  Country: None (occurrence: None)
  Receive Date: 20040312
  Receipt Date: 20030409
  Transmission Date: 20041129
  Serious: Yes (Hospitalization, Disabling, Other)
  Sender: FDA-Public Use
  Company Number: PHHO2003NO04774

PATIENT
  Age: 52 Year
  Sex: Male

DRUGS (4)
  1. LESCOL [Suspect]
     Indication: RENAL TRANSPLANT
  2. NEORAL [Suspect]
     Indication: RENAL TRANSPLANT
  3. PREDNISOLONE [Suspect]
  4. SIMULECT / CHI 621A / SDZ CHI 621 [Suspect]
     Indication: RENAL TRANSPLANT

REACTIONS (13)
  - ARTHRITIS [None]
  - BLOOD CREATININE INCREASED [None]
  - DISEASE PROGRESSION [None]
  - GRAFT DYSFUNCTION [None]
  - GRAFT ISCHAEMIA [None]
  - HYPERKERATOSIS [None]
  - IMMUNOSUPPRESSION [None]
  - ISCHAEMIA [None]
  - KIDNEY TRANSPLANT REJECTION [None]
  - MUSCLE DISORDER [None]
  - RENAL FAILURE [None]
  - RENAL TRANSPLANT [None]
  - THROMBOCYTOPENIA [None]
